FAERS Safety Report 4881473-7 (Version None)
Quarter: 2006Q1

REPORT INFORMATION
  Report Type: 
  Country: None (occurrence: None)
  Receive Date: 20060116
  Receipt Date: 20051226
  Transmission Date: 20060701
  Serious: Yes (Hospitalization)
  Sender: FDA-Public Use
  Company Number: PHBS2005JP19073

PATIENT
  Age: 26 Year
  Sex: Female

DRUGS (7)
  1. TOFRANIL [Suspect]
     Dosage: 2600 MG/D
     Route: 048
     Dates: start: 20040908, end: 20040908
  2. MEXAZOLAM [Suspect]
     Dosage: 10 MG/D
     Route: 048
     Dates: start: 20040908, end: 20040908
  3. MEXAZOLAM [Suspect]
     Dosage: 2 MG/DAY
     Route: 048
     Dates: start: 20040907, end: 20040907
  4. VALPROATE SODIUM [Suspect]
     Dosage: 800 MG/D
     Route: 048
     Dates: start: 20040908, end: 20040908
  5. VALPROATE SODIUM [Suspect]
     Dosage: 9200 MG/DAY
     Route: 048
     Dates: start: 20040907, end: 20040907
  6. CLONAZEPAM [Suspect]
     Dosage: 11 MG/D
     Route: 048
     Dates: start: 20040907, end: 20040907
  7. SUMATRIPTAN SUCCINATE [Suspect]
     Dosage: 1000 MG/D
     Route: 048
     Dates: start: 20040907, end: 20040907

REACTIONS (15)
  - BLOOD PRESSURE DECREASED [None]
  - BLOOD PRESSURE SYSTOLIC DECREASED [None]
  - BODY TEMPERATURE DECREASED [None]
  - BUNDLE BRANCH BLOCK RIGHT [None]
  - CARDIAC ASSISTANCE DEVICE USER [None]
  - DEPRESSED LEVEL OF CONSCIOUSNESS [None]
  - DRUG TOXICITY [None]
  - ELECTROCARDIOGRAM QRS COMPLEX PROLONGED [None]
  - ELECTROCARDIOGRAM QT PROLONGED [None]
  - HEART RATE INCREASED [None]
  - HYPOTENSION [None]
  - OXYGEN SATURATION DECREASED [None]
  - PUPILLARY REFLEX IMPAIRED [None]
  - RESPIRATION ABNORMAL [None]
  - SYNCOPE [None]
